FAERS Safety Report 18411010 (Version 1)
Quarter: 2020Q4

REPORT INFORMATION
  Report Type: Spontaneous
  Country: PL (occurrence: PL)
  Receive Date: 20201021
  Receipt Date: 20201021
  Transmission Date: 20210114
  Serious: Yes (Hospitalization)
  Sender: FDA-Public Use
  Company Number: PL-SA-2020SA290343

PATIENT

DRUGS (5)
  1. DEXAVEN [Concomitant]
     Active Substance: DEXAMETHASONE
     Dosage: 4 MG
     Route: 042
  2. OXALIPLATIN. [Suspect]
     Active Substance: OXALIPLATIN
     Indication: PANCREATIC CARCINOMA
     Dosage: 154.7 UNK
     Route: 042
     Dates: start: 20200129, end: 20200129
  3. AKYNZEO [Concomitant]
     Active Substance: NETUPITANT\PALONOSETRON HYDROCHLORIDE
     Dosage: 1 DF
     Route: 048
  4. CAMPTO [Concomitant]
     Active Substance: IRINOTECAN
     Dosage: 273 MG
     Route: 042
  5. ATROPINE. [Concomitant]
     Active Substance: ATROPINE
     Dosage: DOSE: 1/2 OF AMPOULE
     Route: 042

REACTIONS (4)
  - Feeling hot [Recovered/Resolved]
  - Dyspnoea [Recovered/Resolved]
  - Rhinorrhoea [Recovered/Resolved]
  - Chills [Recovered/Resolved]

NARRATIVE: CASE EVENT DATE: 20200129
